FAERS Safety Report 7491409-0 (Version None)
Quarter: 2011Q2

REPORT INFORMATION
  Report Type: 
  Country: None (occurrence: None)
  Receive Date: 20110519
  Receipt Date: 20110506
  Transmission Date: 20111010
  Serious: Yes (Other)
  Sender: FDA-Public Use
  Company Number: PHHY2011DE39652

PATIENT
  Age: 66 Year
  Sex: Male

DRUGS (4)
  1. CHEMOTHERAPEUTICS NOS [Concomitant]
  2. ZOLEDRONIC ACID [Suspect]
     Dosage: UNK
     Route: 042
     Dates: start: 20060303, end: 20081103
  3. CORTISONE ACETATE [Concomitant]
  4. PAMIDRONATE DISODIUM [Suspect]
     Dosage: UNK
     Route: 042
     Dates: start: 20040103, end: 20060303

REACTIONS (1)
  - OSTEONECROSIS OF JAW [None]
